FAERS Safety Report 5831205-0 (Version None)
Quarter: 2008Q3

REPORT INFORMATION
  Report Type: 
  Country: None (occurrence: None)
  Receive Date: 20080801
  Receipt Date: 20080527
  Transmission Date: 20090109
  Serious: No
  Sender: FDA-Public Use
  Company Number: US-BRISTOL-MYERS SQUIBB COMPANY-14207062

PATIENT
  Sex: Male

DRUGS (2)
  1. COUMADIN [Suspect]
     Indication: ATRIAL FIBRILLATION
  2. LOVENOX [Suspect]

REACTIONS (3)
  - BLOOD BLISTER [None]
  - INJECTION SITE HAEMORRHAGE [None]
  - RASH ERYTHEMATOUS [None]
